FAERS Safety Report 4736428-X (Version None)
Quarter: 2005Q3

REPORT INFORMATION
  Report Type: 
  Country: None (occurrence: None)
  Receive Date: 20050808
  Receipt Date: 20050727
  Transmission Date: 20060218
  Serious: Yes (Other)
  Sender: FDA-Public Use
  Company Number: PHBS2005CO10943

PATIENT
  Age: 23 Year
  Sex: Female

DRUGS (1)
  1. GENTEAL (NVO) [Suspect]
     Indication: DRY EYE
     Dosage: TWICE PER MONTH
     Dates: start: 20050101

REACTIONS (4)
  - CORNEAL DISORDER [None]
  - EYE BURNS [None]
  - INCORRECT ROUTE OF DRUG ADMINISTRATION [None]
  - KERATITIS [None]
